FAERS Safety Report 17230173 (Version 1)
Quarter: 2020Q1

REPORT INFORMATION
  Report Type: Spontaneous
  Country: IR (occurrence: IR)
  Receive Date: 20200103
  Receipt Date: 20200103
  Transmission Date: 20200409
  Serious: Yes (Hospitalization, Other)
  Sender: FDA-Public Use
  Company Number: IR-JNJFOC-20191245505

PATIENT
  Sex: Female
  Weight: 1.98 kg

DRUGS (1)
  1. RIVAROXABAN [Suspect]
     Active Substance: RIVAROXABAN
     Indication: PULMONARY EMBOLISM
     Route: 064

REACTIONS (4)
  - Respiratory distress [Recovered/Resolved]
  - Foetal exposure timing unspecified [Unknown]
  - Hypocalcaemia [Recovered/Resolved]
  - Low birth weight baby [Recovered/Resolved]
